FAERS Safety Report 4492335-1 (Version None)
Quarter: 2004Q3

REPORT INFORMATION
  Report Type: 
  Country: None (occurrence: None)
  Receive Date: 20040921
  Receipt Date: 20040316
  Transmission Date: 20050211
  Serious: Yes (Hospitalization, Other)
  Sender: FDA-Public Use
  Company Number: 163-20785-04030459

PATIENT
  Age: 61 Year
  Sex: Female

DRUGS (13)
  1. THALOMID [Suspect]
     Indication: MULTIPLE MYELOMA
     Dosage: 150 MG, QHS, ORAL
     Route: 048
     Dates: start: 20040114, end: 20040617
  2. DEXAMETHASONE [Suspect]
     Indication: MULTIPLE MYELOMA
     Dosage: 40 MG, DAYS 1-4, ORAL
     Route: 048
     Dates: start: 20040114, end: 20040617
  3. INSULIN [Concomitant]
  4. GLUCOPHAGE [Concomitant]
  5. GLIPIZIDE [Concomitant]
  6. AVANDIA [Concomitant]
  7. AMITRIPTYLINE HCL [Concomitant]
  8. WARFARIN SODIUM [Concomitant]
  9. PROTONIX [Concomitant]
  10. RESTORIL [Concomitant]
  11. SEPTRA DS [Concomitant]
  12. COUMADIN [Concomitant]
  13. ZOMETA [Concomitant]

REACTIONS (9)
  - ANOREXIA [None]
  - BACK PAIN [None]
  - COMPRESSION FRACTURE [None]
  - DIFFICULTY IN WALKING [None]
  - HYPERHIDROSIS [None]
  - NAUSEA [None]
  - PERIPHERAL MOTOR NEUROPATHY [None]
  - TREMOR [None]
  - VOMITING [None]
